FAERS Safety Report 8827409 (Version 1)
Quarter: 2012Q4

REPORT INFORMATION
  Report Type: 
  Country: US (occurrence: US)
  Receive Date: 20121005
  Receipt Date: 20121005
  Transmission Date: 20130627
  Serious: No
  Sender: FDA-Public Use
  Company Number: US-BRISTOL-MYERS SQUIBB COMPANY-16500357

PATIENT
  Age: 94 Year
  Sex: Female

DRUGS (5)
  1. AVAPRO [Suspect]
  2. ATENOLOL [Suspect]
  3. NORVASC [Suspect]
  4. DILTIAZEM HCL [Suspect]
  5. CARVEDILOL [Suspect]

REACTIONS (1)
  - Adverse event [Unknown]
